FAERS Safety Report 22184436 (Version 1)
Quarter: 2023Q2

REPORT INFORMATION
  Report Type: Spontaneous
  Country: CN (occurrence: None)
  Receive Date: 20230407
  Receipt Date: 20230407
  Transmission Date: 20230721
  Serious: Yes (Other)
  Sender: FDA-Public Use
  Company Number: CN-ROCHE-3325384

PATIENT
  Sex: Female
  Weight: 57 kg

DRUGS (6)
  1. AVASTIN [Suspect]
     Active Substance: BEVACIZUMAB
     Indication: Ovarian cancer
     Route: 041
     Dates: start: 20230327
  2. AVASTIN [Suspect]
     Active Substance: BEVACIZUMAB
     Dosage: PACLITAXEL FOR INJECTION (ALBUMIN BOUND)L + LOBAPLATIN + BEVACIZUMAB INJECTION
     Route: 065
  3. PACLITAXEL [Suspect]
     Active Substance: PACLITAXEL
     Indication: Ovarian cancer
     Route: 041
     Dates: start: 20230325
  4. PACLITAXEL [Suspect]
     Active Substance: PACLITAXEL
     Dosage: PACLITAXEL FOR INJECTION (ALBUMIN BOUND)L + LOBAPLATIN + BEVACIZUMAB INJECTION
     Route: 065
  5. CISPLATIN [Suspect]
     Active Substance: CISPLATIN
     Indication: Ovarian cancer
     Route: 041
     Dates: start: 20230325
  6. LOBAPLATIN [Concomitant]
     Active Substance: LOBAPLATIN
     Indication: Ovarian cancer
     Dosage: PACLITAXEL FOR INJECTION (ALBUMIN BOUND)L + LOBAPLATIN + BEVACIZUMAB INJECTION
     Route: 065

REACTIONS (4)
  - White blood cell count decreased [Recovering/Resolving]
  - Neutrophil count decreased [Recovering/Resolving]
  - Platelet count decreased [Recovering/Resolving]
  - Myelosuppression [Unknown]

NARRATIVE: CASE EVENT DATE: 20230331
